FAERS Safety Report 8394231-6 (Version None)
Quarter: 2012Q2

REPORT INFORMATION
  Report Type: 
  Country: None (occurrence: None)
  Receive Date: 20120530
  Receipt Date: 20120522
  Transmission Date: 20120825
  Serious: Yes (Hospitalization, Other)
  Sender: FDA-Public Use
  Company Number: CA-BRISTOL-MYERS SQUIBB COMPANY-16618662

PATIENT
  Age: 52 Year
  Sex: Female

DRUGS (6)
  1. KETOPROFEN [Concomitant]
  2. SEROQUEL [Concomitant]
  3. METHOTREXATE [Concomitant]
  4. ZOPICLONE [Concomitant]
  5. ORENCIA [Suspect]
     Indication: RHEUMATOID ARTHRITIS
     Dosage: NO OF INF:20 LAST INF:2MAY12
     Route: 042
     Dates: start: 20101219
  6. CELEXA [Concomitant]

REACTIONS (2)
  - MYOCARDIAL INFARCTION [None]
  - CORONARY ARTERY DISEASE [None]
